FAERS Safety Report 4891834-8 (Version None)
Quarter: 2006Q1

REPORT INFORMATION
  Report Type: 
  Country: None (occurrence: None)
  Receive Date: 20060126
  Receipt Date: 20060116
  Transmission Date: 20060701
  Serious: Yes (Hospitalization)
  Sender: FDA-Public Use
  Company Number: JP-BOEHRINGER INGELHEIM PHARMACEUTICALS, INC.-2006-BP-00530NB

PATIENT
  Age: 60 Year
  Sex: Male
  Weight: 87 kg

DRUGS (6)
  1. MICARDIS [Suspect]
     Indication: HYPERTENSION
     Route: 048
     Dates: start: 20051215, end: 20060109
  2. ALLOPURINOL [Concomitant]
     Route: 048
     Dates: start: 20010824, end: 20060109
  3. PERSANTIN [Concomitant]
     Route: 048
     Dates: start: 19951130, end: 20060109
  4. ZYRTEC (CETIRIZINE HYDROCHLOERIDE) [Concomitant]
     Indication: DERMATITIS ALLERGIC
     Route: 048
     Dates: start: 19990225, end: 20060109
  5. CARDENALIN [Concomitant]
     Indication: HYPERTENSION
     Route: 048
     Dates: start: 19991007, end: 20060109
  6. LIPIDIL [Concomitant]
     Indication: HYPERLIPIDAEMIA
     Route: 048
     Dates: start: 20050407, end: 20060109

REACTIONS (4)
  - ENTEROCOLITIS [None]
  - JAUNDICE [None]
  - RENAL FAILURE [None]
  - SEPSIS [None]
